FAERS Safety Report 21499629 (Version 1)
Quarter: 2022Q4

REPORT INFORMATION
  Report Type: Spontaneous
  Country: US (occurrence: None)
  Receive Date: 20221024
  Receipt Date: 20221024
  Transmission Date: 20230112
  Serious: Yes (Other)
  Sender: FDA-Public Use
  Company Number: None

PATIENT
  Age: 63 Year
  Sex: Male

DRUGS (5)
  1. ERAVACYCLINE [Suspect]
     Active Substance: ERAVACYCLINE
     Indication: Mycobacterium abscessus infection
  2. AZITHROMYCIN [Concomitant]
     Active Substance: AZITHROMYCIN
  3. IMIPENEM [Concomitant]
     Active Substance: IMIPENEM
  4. TEDIZOLID [Concomitant]
     Active Substance: TEDIZOLID
  5. CLOFAZIMINE [Concomitant]
     Active Substance: CLOFAZIMINE

REACTIONS (5)
  - COVID-19 [None]
  - Wound haemorrhage [None]
  - Haemoglobin decreased [None]
  - Toxicity to various agents [None]
  - Blood fibrinogen decreased [None]
